FAERS Safety Report 19877098 (Version 1)
Quarter: 2021Q3

REPORT INFORMATION
  Report Type: Report from Study
  Country: FR (occurrence: FR)
  Receive Date: 20210923
  Receipt Date: 20210923
  Transmission Date: 20211014
  Serious: Yes (Hospitalization, Other)
  Sender: FDA-Public Use
  Company Number: FR-TAKEDA-FR202032790

PATIENT
  Age: 23 Year
  Sex: Male

DRUGS (14)
  1. TEDUGLUTIDE [Suspect]
     Active Substance: TEDUGLUTIDE
     Indication: SHORT-BOWEL SYNDROME
     Dosage: 1.8 MILLIGRAM (0.05MG/KG), 1X/DAY:QD
     Route: 065
     Dates: start: 20161115
  2. TEDUGLUTIDE [Suspect]
     Active Substance: TEDUGLUTIDE
     Dosage: 1.8 MILLIGRAM, QD
     Route: 065
     Dates: start: 20161115, end: 20201019
  3. TEDUGLUTIDE [Suspect]
     Active Substance: TEDUGLUTIDE
     Dosage: 1.8 MILLIGRAM, QD
     Route: 065
     Dates: start: 20161115, end: 20201019
  4. INNOHEP [Concomitant]
     Active Substance: TINZAPARIN SODIUM
     Indication: COLLATERAL CIRCULATION
     Dosage: 0.40 MILLILITER, QD
     Route: 058
     Dates: start: 20200615
  5. VITAMIN D3 [Concomitant]
     Active Substance: CHOLECALCIFEROL
     Indication: SUPPLEMENTATION THERAPY
  6. TEDUGLUTIDE [Suspect]
     Active Substance: TEDUGLUTIDE
     Indication: SHORT-BOWEL SYNDROME
     Dosage: 1.8 MILLIGRAM (0.05MG/KG), 1X/DAY:QD
     Route: 065
     Dates: start: 20161115
  7. VANCOMYCIN [Concomitant]
     Active Substance: VANCOMYCIN
     Indication: STAPHYLOCOCCAL INFECTION
  8. ALPRAZOLAM. [Concomitant]
     Active Substance: ALPRAZOLAM
     Indication: ANXIETY
     Dosage: 0.07 MILLIGRAM, PRN
     Route: 048
     Dates: start: 20201002
  9. TIXTAR [Concomitant]
     Active Substance: RIFAXIMIN
     Indication: GASTROINTESTINAL BACTERIAL OVERGROWTH
     Dosage: 550 MILLIGRAM, 2X/DAY, 10 DAYS/ MONTH
     Route: 048
     Dates: start: 20201022, end: 20210122
  10. TEDUGLUTIDE [Suspect]
     Active Substance: TEDUGLUTIDE
     Indication: SHORT-BOWEL SYNDROME
     Dosage: 1.8 MILLIGRAM (0.05MG/KG), 1X/DAY:QD
     Route: 065
     Dates: start: 20161115
  11. TEDUGLUTIDE [Suspect]
     Active Substance: TEDUGLUTIDE
     Dosage: 1.8 MILLIGRAM, QD
     Route: 065
     Dates: start: 20161115, end: 20201019
  12. TIXTAR [Concomitant]
     Active Substance: RIFAXIMIN
     Dosage: 550 MILLIGRAM, BID
     Route: 048
     Dates: start: 20200814, end: 20200824
  13. TEDUGLUTIDE [Suspect]
     Active Substance: TEDUGLUTIDE
     Indication: SHORT-BOWEL SYNDROME
     Dosage: 1.8 MILLIGRAM (0.05MG/KG), 1X/DAY:QD
     Route: 065
     Dates: start: 20161115
  14. TEDUGLUTIDE [Suspect]
     Active Substance: TEDUGLUTIDE
     Dosage: 1.8 MILLIGRAM, QD
     Route: 065
     Dates: start: 20161115, end: 20201019

REACTIONS (3)
  - Staphylococcal infection [Recovered/Resolved]
  - Oliguria [Recovered/Resolved]
  - Arthralgia [Not Recovered/Not Resolved]

NARRATIVE: CASE EVENT DATE: 202003
